FAERS Safety Report 8156177-8 (Version None)
Quarter: 2012Q1

REPORT INFORMATION
  Report Type: 
  Country: None (occurrence: None)
  Receive Date: 20120222
  Receipt Date: 20120213
  Transmission Date: 20120608
  Serious: Yes (Death, Life-Threatening)
  Sender: FDA-Public Use
  Company Number: JP-AMGEN-JPNCT2012011126

PATIENT
  Age: 49 Year
  Sex: Female
  Weight: 56 kg

DRUGS (15)
  1. EMEND [Concomitant]
     Dosage: UNK
     Route: 048
  2. ISOVORIN [Suspect]
     Indication: COLORECTAL CANCER
     Dosage: UNK
     Route: 041
     Dates: start: 20111115, end: 20111215
  3. FLUOROURACIL [Suspect]
     Dosage: UNK
     Route: 041
     Dates: start: 20111115, end: 20111215
  4. FLUOROURACIL [Suspect]
     Indication: COLORECTAL CANCER
     Dosage: UNK
     Route: 040
     Dates: start: 20111115, end: 20111215
  5. PANITUMUMAB [Suspect]
     Indication: COLORECTAL CANCER
     Dosage: 339 MG, Q2WK
     Route: 041
     Dates: start: 20111115, end: 20111213
  6. CLARITHROMYCIN [Concomitant]
     Dosage: UNK
     Route: 048
  7. DECADRON [Concomitant]
     Dosage: UNK
     Route: 065
  8. OXALIPLATIN [Suspect]
     Indication: COLORECTAL CANCER
     Route: 041
     Dates: start: 20111115, end: 20111215
  9. ALOXI [Concomitant]
     Route: 042
  10. MAGNESIUM SULFATE [Concomitant]
     Dosage: UNK
     Route: 065
  11. FAMOGAST [Concomitant]
     Dosage: UNK
     Route: 048
  12. MAGNESIUM SULFATE [Concomitant]
     Dosage: UNK
     Route: 048
  13. CELECOXIB [Concomitant]
     Dosage: UNK
     Route: 048
  14. CALCIUM CARBONATE [Concomitant]
     Dosage: UNK
     Route: 042
  15. MINOCYCLINE HYDROCHLORIDE [Concomitant]
     Dosage: UNK
     Route: 065

REACTIONS (1)
  - INTERSTITIAL LUNG DISEASE [None]
